FAERS Safety Report 7942058-9 (Version None)
Quarter: 2011Q4

REPORT INFORMATION
  Report Type: 
  Country: None (occurrence: None)
  Receive Date: 20111128
  Receipt Date: 20111128
  Transmission Date: 20120403
  Serious: Yes (Other)
  Sender: FDA-Public Use
  Company Number: None

PATIENT
  Age: 30 Year
  Sex: Female
  Weight: 54.431 kg

DRUGS (1)
  1. DROSPIRENONE AND ETHINYL ESTRADIOL [Suspect]
     Indication: CONTRACEPTION
     Dosage: 1 PILL
     Route: 048
     Dates: start: 20111123, end: 20111127

REACTIONS (11)
  - HYPERSOMNIA [None]
  - IMPAIRED WORK ABILITY [None]
  - FATIGUE [None]
  - LOSS OF LIBIDO [None]
  - NIGHTMARE [None]
  - PRODUCT SUBSTITUTION ISSUE [None]
  - APATHY [None]
  - ABDOMINAL DISTENSION [None]
  - DEPRESSION [None]
  - EMOTIONAL POVERTY [None]
  - ACTIVITIES OF DAILY LIVING IMPAIRED [None]
